FAERS Safety Report 7827587-0 (Version None)
Quarter: 2011Q4

REPORT INFORMATION
  Report Type: 
  Country: None (occurrence: None)
  Receive Date: 20111020
  Receipt Date: 20110927
  Transmission Date: 20120403
  Serious: Yes (Life-Threatening, Hospitalization, Other)
  Sender: FDA-Public Use
  Company Number: FR-BAYER-2011-076597

PATIENT
  Age: 71 Year
  Sex: Male

DRUGS (10)
  1. KARDEGIC [ACETYLSALICYLATE LYSINE,ACETYLSALICYLIC ACID] [Concomitant]
     Dosage: 160 MG, QD
     Route: 048
  2. ADANCOR [Concomitant]
     Dosage: 20 MG, BID
  3. IRBESARTAN [Concomitant]
     Dosage: 50 MG, UNK
     Route: 048
  4. NEXIUM [Concomitant]
     Dosage: 40 MG, QD
  5. AMLODIPINE BESYLATE [Concomitant]
     Dosage: 5 MG, QD
     Route: 048
  6. BLINDED SORAFENIB (RAF KINASE INHIBITOR) [Suspect]
     Indication: RENAL CELL CARCINOMA
     Dosage: 400 MG, QOD
     Route: 048
     Dates: start: 20110621, end: 20110812
  7. BLINDED SORAFENIB (RAF KINASE INHIBITOR) [Suspect]
     Dosage: 800 MG, UNK
     Route: 048
     Dates: start: 20110621, end: 20110812
  8. SIMVASTATIN [Concomitant]
     Dosage: 20 MG, QD
     Route: 048
  9. METFORMIN HCL [Concomitant]
     Dosage: 500 MG, TID
  10. IRBESARTAN [Concomitant]
     Dosage: 150 MG, QD

REACTIONS (14)
  - CARDIAC FAILURE [None]
  - GENERAL PHYSICAL HEALTH DETERIORATION [None]
  - PYREXIA [None]
  - INTERSTITIAL LUNG DISEASE [None]
  - HYPOXIA [None]
  - PNEUMONIA [None]
  - SEPSIS [None]
  - CANDIDIASIS [None]
  - METABOLIC ACIDOSIS [None]
  - RENAL FAILURE ACUTE [None]
  - VENTRICULAR TACHYCARDIA [None]
  - MULTI-ORGAN FAILURE [None]
  - INTESTINAL OBSTRUCTION [None]
  - PULSE ABSENT [None]
